FAERS Safety Report 4408889-7 (Version None)
Quarter: 2004Q3

REPORT INFORMATION
  Report Type: 
  Country: None (occurrence: None)
  Receive Date: 20040727
  Receipt Date: 20040714
  Transmission Date: 20050211
  Serious: Yes (Death, Other)
  Sender: FDA-Public Use
  Company Number: PHBS2004JP09437

PATIENT
  Age: 21 Year
  Sex: Female

DRUGS (1)
  1. CYCLOSPORINE [Suspect]
     Indication: BONE MARROW TRANSPLANT
     Route: 048

REACTIONS (5)
  - APLASTIC ANAEMIA [None]
  - CONVULSION [None]
  - ENCEPHALOPATHY [None]
  - HEADACHE [None]
  - HYPERTENSION [None]
